FAERS Safety Report 7936478-6 (Version None)
Quarter: 2011Q4

REPORT INFORMATION
  Report Type: 
  Country: None (occurrence: None)
  Receive Date: 20111121
  Receipt Date: 20111107
  Transmission Date: 20120403
  Serious: Yes (Hospitalization, Other)
  Sender: FDA-Public Use
  Company Number: 11-088

PATIENT
  Age: 53 Year
  Sex: Female

DRUGS (13)
  1. BUDESONIDE/FORMOTEROL FUMARATE DIHYDRATE [Suspect]
     Dosage: 200/6 MCG;BID
  2. ACIDOPHILUS WITH BIFIDUS (NO PREF. NAME) [Suspect]
     Dosage: TID;PO
     Dates: start: 20081101, end: 20090401
  3. CONJUGATED LINOLEIC ACID (NO PREF. NAME) [Suspect]
     Dosage: TID;PO
     Dates: start: 20081101, end: 20090401
  4. GHR HOMAN GROWTH HORMONE (NO PREF. NAME) [Suspect]
     Dates: start: 20081001, end: 20090101
  5. NUTRIMINC (NO PREF. NAME) [Suspect]
     Dosage: CAPSULES;BID;PO
     Route: 048
     Dates: start: 20081101, end: 20090401
  6. VENLAFAXINE HCL [Suspect]
     Dosage: 150 MG
  7. PROGESTERONE [Suspect]
     Dosage: 100 MG
     Dates: end: 20090401
  8. METHYLSOLFONYLMETHANE (NO PREF. NAME) [Suspect]
     Dosage: QD-TID;
     Dates: start: 20081101, end: 20090401
  9. VITAMIN D (NO PREF. NAME) [Concomitant]
     Dosage: QD;PO
     Route: 048
     Dates: start: 20081101, end: 20090401
  10. SOFTCAP FISH OIL (NO PREF. NAME) [Suspect]
     Dosage: BID; PO
     Route: 048
     Dates: start: 20081101, end: 20090401
  11. VARENICLINE [Suspect]
     Dosage: 0.5 MG;QD
     Dates: start: 20081201, end: 20090401
  12. ESTRADERM [Suspect]
     Dosage: 50 MCG/D;Q2W
     Dates: end: 20090401
  13. LORAZEPAM [Suspect]
     Dosage: 1 MG;QD
     Dates: end: 20090401

REACTIONS (11)
  - FATIGUE [None]
  - HEPATIC CIRRHOSIS [None]
  - SPIDER NAEVUS [None]
  - ASTERIXIS [None]
  - HEPATIC ENCEPHALOPATHY [None]
  - CONFUSIONAL STATE [None]
  - TOXICITY TO VARIOUS AGENTS [None]
  - HEPATIC NECROSIS [None]
  - JAUNDICE [None]
  - ASCITES [None]
  - AUTOIMMUNE HEPATITIS [None]
